FAERS Safety Report 8141131-2 (Version None)
Quarter: 2012Q1

REPORT INFORMATION
  Report Type: 
  Country: None (occurrence: None)
  Receive Date: 20120103
  Receipt Date: 20110912
  Transmission Date: 20120608
  Serious: No
  Sender: FDA-Public Use
  Company Number: AE-2011-001493

PATIENT
  Age: 49 Year
  Sex: Male
  Weight: 90.7194 kg

DRUGS (7)
  1. INCIVEK [Suspect]
     Dosage: 2250 (750 MG, 3 IN 1 D),
     Dates: start: 20110601, end: 20110905
  2. ISENTRESS [Concomitant]
  3. TRAZODONE HCL [Concomitant]
  4. PEGASYS [Concomitant]
  5. RIBAVIRIN [Concomitant]
  6. ZIAGEN [Concomitant]
  7. ATRIPLA [Concomitant]

REACTIONS (4)
  - FATIGUE [None]
  - COUGH [None]
  - DYSPNOEA [None]
  - ANAEMIA [None]
